FAERS Safety Report 5851799-9 (Version None)
Quarter: 2008Q3

REPORT INFORMATION
  Report Type: 
  Country: None (occurrence: None)
  Receive Date: 20080811
  Receipt Date: 20080507
  Transmission Date: 20090109
  Serious: Yes (Other)
  Sender: FDA-Public Use
  Company Number: 200812783US

PATIENT
  Age: 44 Year
  Sex: Male

DRUGS (10)
  1. APIDRA [Suspect]
     Indication: TYPE 2 DIABETES MELLITUS
     Dosage: TID SC
     Route: 058
     Dates: start: 20080101
  2. APIDRA [Suspect]
     Indication: TYPE 2 DIABETES MELLITUS
     Dosage: 70 U QD SC
     Route: 058
  3. OPTICLIK [Suspect]
     Indication: TYPE 2 DIABETES MELLITUS
  4. MORPHINE [Concomitant]
  5. OXYCODONE HCL [Concomitant]
  6. NEURONTIN [Concomitant]
  7. AMITRIPTYLINE HYDROCHLORIDE (ELAVIL /00002202/) [Concomitant]
  8. LIPITOR [Concomitant]
  9. ERGOCALCIFEROL (VIT D) [Concomitant]
  10. HYDROXYZINE ^ANTIASTHMATIC MEDICATION (NOS^ [Concomitant]

REACTIONS (6)
  - BLINDNESS [None]
  - FALL [None]
  - HYPOGLYCAEMIA [None]
  - TREMOR [None]
  - VOMITING [None]
  - WRONG DRUG ADMINISTERED [None]
